FAERS Safety Report 6571748-8 (Version None)
Quarter: 2010Q1

REPORT INFORMATION
  Report Type: 
  Country: None (occurrence: None)
  Receive Date: 20100205
  Receipt Date: 20100126
  Transmission Date: 20100710
  Serious: Yes (Other)
  Sender: FDA-Public Use
  Company Number: US-ABBOTT-10P-163-0622913-00

PATIENT
  Sex: Male
  Weight: 65.83 kg

DRUGS (4)
  1. NIASPAN [Suspect]
     Indication: BLOOD CHOLESTEROL INCREASED
     Dates: start: 20091101
  2. FLOMAX [Concomitant]
     Indication: URINARY TRACT DISORDER
  3. COQ10 [Concomitant]
     Indication: ROUTINE HEALTH MAINTENANCE
  4. LIPITOR [Concomitant]
     Indication: BLOOD CHOLESTEROL INCREASED

REACTIONS (5)
  - ANAEMIA [None]
  - RASH MACULAR [None]
  - RASH PAPULAR [None]
  - RASH PRURITIC [None]
  - THROMBOCYTOPENIA [None]
